FAERS Safety Report 4744713-0 (Version None)
Quarter: 2005Q3

REPORT INFORMATION
  Report Type: 
  Country: None (occurrence: None)
  Receive Date: 20050815
  Receipt Date: 20050803
  Transmission Date: 20060218
  Serious: Yes (Death)
  Sender: FDA-Public Use
  Company Number: US-KINGPHARMUSA00001-K200501033

PATIENT
  Age: 34 Year
  Sex: Male
  Weight: 109 kg

DRUGS (9)
  1. SKELAXIN [Suspect]
     Indication: MUSCLE SPASMS
     Dosage: 800 MG, UNK
     Route: 048
     Dates: end: 20050711
  2. SEROQUEL [Concomitant]
     Route: 048
     Dates: end: 20050711
  3. CITALOPRAM [Concomitant]
     Route: 048
     Dates: end: 20050711
  4. ADVAIR DISKUS 100/50 [Concomitant]
     Indication: PNEUMONIA
     Dates: end: 20050711
  5. ALBUTEROL [Concomitant]
     Indication: PNEUMONIA
     Dosage: UNK, UNK
     Dates: end: 20050711
  6. ALPRAZOLAM [Concomitant]
     Indication: ANXIETY
     Route: 048
     Dates: end: 20050711
  7. TESTOSTERONE [Concomitant]
     Dates: end: 20050711
  8. TRAMADOL HCL [Suspect]
     Dates: end: 20050711
  9. GABAPENTIN [Concomitant]
     Route: 048
     Dates: end: 20050711

REACTIONS (2)
  - DRUG TOXICITY [None]
  - OVERDOSE [None]
